FAERS Safety Report 11835445 (Version 3)
Quarter: 2016Q2

REPORT INFORMATION
  Report Type: Report from Study
  Country: US (occurrence: US)
  Receive Date: 20151215
  Receipt Date: 20160525
  Transmission Date: 20160815
  Serious: No
  Sender: FDA-Public Use
  Company Number: US-AMGEN-USASL2015132352

PATIENT
  Age: 52 Year
  Sex: Female

DRUGS (2)
  1. ENBREL [Suspect]
     Active Substance: ETANERCEPT
     Indication: RHEUMATOID ARTHRITIS
     Dosage: 50 MG, WEEKLY
     Route: 065
     Dates: start: 20140707, end: 20160512
  2. VOLTAREN [Suspect]
     Active Substance: DICLOFENAC SODIUM
     Indication: PRODUCT USED FOR UNKNOWN INDICATION
     Dosage: UNK
     Route: 065

REACTIONS (14)
  - Bone erosion [Unknown]
  - Ear infection [Unknown]
  - Skin atrophy [Unknown]
  - Hepatic enzyme increased [Unknown]
  - Ligament rupture [Unknown]
  - Sinusitis [Recovered/Resolved]
  - Tooth fracture [Unknown]
  - Varicose vein [Unknown]
  - Joint range of motion decreased [Not Recovered/Not Resolved]
  - Fungal infection [Recovered/Resolved]
  - Musculoskeletal disorder [Unknown]
  - Osteoarthritis [Not Recovered/Not Resolved]
  - Musculoskeletal pain [Unknown]
  - Aphasia [Unknown]

NARRATIVE: CASE EVENT DATE: 2015
